FAERS Safety Report 4785757-2 (Version None)
Quarter: 2005Q4

REPORT INFORMATION
  Report Type: 
  Country: None (occurrence: None)
  Receive Date: 20051003
  Receipt Date: 20050922
  Transmission Date: 20060501
  Serious: Yes (Life-Threatening, Hospitalization, Other)
  Sender: FDA-Public Use
  Company Number: US-MERCK-0509USA03524

PATIENT
  Age: 87 Year
  Sex: Female
  Weight: 73 kg

DRUGS (8)
  1. ZOCOR [Suspect]
     Indication: HYPERLIPIDAEMIA
     Route: 048
     Dates: start: 19990101, end: 20050801
  2. ZOCOR [Suspect]
     Indication: HYPERCHOLESTEROLAEMIA
     Route: 048
     Dates: start: 19990101, end: 20050801
  3. ERYTHROMYCIN [Concomitant]
     Route: 065
     Dates: start: 20050801, end: 20050801
  4. ATENOLOL [Concomitant]
     Indication: HYPERTENSION
     Route: 065
  5. MAXZIDE [Concomitant]
     Indication: HYPERTENSION
     Route: 065
  6. BENICAR [Concomitant]
     Indication: HYPERTENSION
     Route: 065
  7. NORVASC [Concomitant]
     Indication: HYPERTENSION
     Route: 065
  8. [THERAPY UNSPECIFIED] [Concomitant]
     Indication: HYPERTENSION
     Route: 065

REACTIONS (3)
  - BLOOD CREATININE INCREASED [None]
  - INFECTION [None]
  - RHABDOMYOLYSIS [None]
